FAERS Safety Report 25486257 (Version 2)
Quarter: 2025Q3

REPORT INFORMATION
  Report Type: Spontaneous
  Country: US (occurrence: US)
  Receive Date: 20250626
  Receipt Date: 20250702
  Transmission Date: 20251021
  Serious: No
  Sender: BIOGEN
  Company Number: US-BIOGEN-2025BI01314982

PATIENT
  Age: 25 Year
  Sex: Female

DRUGS (1)
  1. ZURZUVAE [Suspect]
     Active Substance: ZURANOLONE
     Indication: Product used for unknown indication
     Route: 050

REACTIONS (5)
  - Headache [Unknown]
  - Breast pain [Unknown]
  - Product storage error [Unknown]
  - Nausea [Unknown]
  - Dizziness [Unknown]
